FAERS Safety Report 9070731 (Version 2)
Quarter: 2013Q1

REPORT INFORMATION
  Report Type: Spontaneous
  Country: FR (occurrence: FR)
  Receive Date: 20130129
  Receipt Date: 20130225
  Transmission Date: 20140127
  Serious: Yes (Hospitalization, Other)
  Sender: FDA-Public Use
  Company Number: FR-ASTELLAS-2013EU000604

PATIENT
  Age: 73 None
  Sex: Male

DRUGS (3)
  1. VESICARE [Suspect]
     Indication: DYSURIA
     Dosage: 5 MG, UNKNOWN/D
     Route: 048
  2. PERMIXON [Concomitant]
     Dosage: UNK
     Route: 065
  3. DAFALGAN [Concomitant]
     Dosage: 500 MG, UNKNOWN/D
     Route: 048

REACTIONS (4)
  - Off label use [Unknown]
  - Fall [Recovering/Resolving]
  - Orthostatic hypotension [Unknown]
  - Radius fracture [Recovering/Resolving]
